FAERS Safety Report 6186186-X (Version None)
Quarter: 2009Q2

REPORT INFORMATION
  Report Type: 
  Country: None (occurrence: None)
  Receive Date: 20090511
  Receipt Date: 20090428
  Transmission Date: 20091009
  Serious: Yes (Hospitalization)
  Sender: FDA-Public Use
  Company Number: JP-PFIZER INC-2009199090

PATIENT
  Age: 55 Year

DRUGS (4)
  1. CELECOXIB [Suspect]
     Indication: RHEUMATOID ARTHRITIS
     Dosage: 100 MG, 2X/DAY
     Route: 048
     Dates: start: 20081213, end: 20081216
  2. PREDONINE [Concomitant]
     Dosage: 5 MG, 1X/DAY
     Route: 048
     Dates: start: 19980101
  3. SELBEX [Concomitant]
     Dosage: UNK
     Route: 048
     Dates: start: 19980101
  4. LOXONIN [Concomitant]
     Dosage: 60 MG, 1X/DAY
     Route: 048
     Dates: start: 19980101, end: 20081213

REACTIONS (1)
  - DRUG ERUPTION [None]
